FAERS Safety Report 5694874-4 (Version None)
Quarter: 2008Q2

REPORT INFORMATION
  Report Type: 
  Country: None (occurrence: None)
  Receive Date: 20080404
  Receipt Date: 20080222
  Transmission Date: 20081010
  Serious: No
  Sender: FDA-Public Use
  Company Number: A0709650A

PATIENT
  Age: 5 Year
  Sex: Male

DRUGS (3)
  1. ADVAIR HFA [Suspect]
     Indication: ASTHMA
     Route: 055
     Dates: end: 20080201
  2. FLONASE [Suspect]
     Route: 045
  3. SINGULAIR [Concomitant]

REACTIONS (10)
  - ARTHRALGIA [None]
  - CONFUSIONAL STATE [None]
  - CRYING [None]
  - DYSKINESIA [None]
  - ILL-DEFINED DISORDER [None]
  - LETHARGY [None]
  - MOOD ALTERED [None]
  - NECK PAIN [None]
  - PALLOR [None]
  - TREMOR [None]
